FAERS Safety Report 7053458-6 (Version None)
Quarter: 2010Q4

REPORT INFORMATION
  Report Type: 
  Country: None (occurrence: None)
  Receive Date: 20101020
  Receipt Date: 20101014
  Transmission Date: 20110411
  Serious: Yes (Other)
  Sender: FDA-Public Use
  Company Number: GT-BAXTER-2010BH025920

PATIENT
  Age: 32 Year
  Sex: Female

DRUGS (1)
  1. FORANE [Suspect]
     Indication: HYSTERECTOMY
     Route: 055

REACTIONS (1)
  - DRUG INEFFECTIVE [None]
